FAERS Safety Report 9246899 (Version 1)
Quarter: 2013Q2

REPORT INFORMATION
  Report Type: Spontaneous
  Country: US (occurrence: US)
  Receive Date: 20130422
  Receipt Date: 20130422
  Transmission Date: 20140414
  Serious: No
  Sender: FDA-Public Use
  Company Number: US-ABBOTT-12P-163-0969867-00

PATIENT
  Age: 11 Year
  Sex: Female

DRUGS (1)
  1. LUPRON DEPOT-PED 15 MG [Suspect]
     Indication: PRECOCIOUS PUBERTY
     Route: 030
     Dates: start: 201205

REACTIONS (3)
  - Injection site erythema [Recovering/Resolving]
  - Injection site swelling [Recovering/Resolving]
  - Injection site pain [Recovering/Resolving]
